FAERS Safety Report 12847642 (Version 1)
Quarter: 2016Q4

REPORT INFORMATION
  Report Type: Spontaneous
  Country: US (occurrence: US)
  Receive Date: 20161013
  Receipt Date: 20161013
  Transmission Date: 20170207
  Serious: Yes (Other)
  Sender: FDA-Public Use
  Company Number: None

PATIENT
  Age: 42 Year
  Sex: Female
  Weight: 76.5 kg

DRUGS (9)
  1. HYDROXYZINE [Concomitant]
     Active Substance: HYDROXYZINE\HYDROXYZINE HYDROCHLORIDE
  2. HYDROXYZINE [Concomitant]
     Active Substance: HYDROXYZINE\HYDROXYZINE HYDROCHLORIDE
  3. TOPICAL BENADRYL [Concomitant]
  4. PREDNISONE. [Concomitant]
     Active Substance: PREDNISONE
  5. MULTI-VITAMIN FOR WOMEN [Concomitant]
  6. UP AND UP IBUPROFEN [Suspect]
     Active Substance: IBUPROFEN
     Indication: ARTHRALGIA
     Dosage: ?          QUANTITY:2 CAPSULE(S);OTHER ROUTE:ORALLY?
     Route: 048
  7. RANITIDINE. [Concomitant]
     Active Substance: RANITIDINE
  8. LEVOCETIRIZIN- E [Concomitant]
  9. CHOLORBLEST STEROID CREAM [Concomitant]

REACTIONS (3)
  - Urticaria [None]
  - Pruritus [None]
  - Burning sensation [None]

NARRATIVE: CASE EVENT DATE: 20161008
